FAERS Safety Report 23958342 (Version 1)
Quarter: 2024Q2

REPORT INFORMATION
  Report Type: Report from Study
  Country: US (occurrence: US)
  Receive Date: 20240610
  Receipt Date: 20240610
  Transmission Date: 20240715
  Serious: Yes (Hospitalization, Other)
  Sender: FDA-Public Use
  Company Number: US-TAKEDA-2024TUS056347

PATIENT
  Sex: Male

DRUGS (4)
  1. TEDUGLUTIDE [Suspect]
     Active Substance: TEDUGLUTIDE
     Indication: Short-bowel syndrome
     Dosage: 0.315 MILLILITER, QD
     Route: 050
     Dates: start: 20230927
  2. TEDUGLUTIDE [Suspect]
     Active Substance: TEDUGLUTIDE
     Indication: Short-bowel syndrome
     Dosage: 0.315 MILLILITER, QD
     Route: 050
     Dates: start: 20230927
  3. TEDUGLUTIDE [Suspect]
     Active Substance: TEDUGLUTIDE
     Indication: Short-bowel syndrome
     Dosage: 0.315 MILLILITER, QD
     Route: 050
     Dates: start: 20230927
  4. TEDUGLUTIDE [Suspect]
     Active Substance: TEDUGLUTIDE
     Indication: Short-bowel syndrome
     Dosage: 0.315 MILLILITER, QD
     Route: 050
     Dates: start: 20230927

REACTIONS (4)
  - Adverse event [Unknown]
  - Product distribution issue [Unknown]
  - Product use issue [Unknown]
  - No adverse event [Unknown]
